FAERS Safety Report 21276511 (Version 1)
Quarter: 2022Q3

REPORT INFORMATION
  Report Type: Spontaneous
  Country: US (occurrence: US)
  Receive Date: 20220831
  Receipt Date: 20220831
  Transmission Date: 20221026
  Serious: No
  Sender: FDA-Public Use
  Company Number: US-ABBVIE-22K-163-4411280-00

PATIENT
  Age: 66 Year
  Sex: Male

DRUGS (1)
  1. HUMIRA [Suspect]
     Active Substance: ADALIMUMAB
     Indication: Rheumatoid arthritis
     Route: 058
     Dates: start: 20220428

REACTIONS (4)
  - Poor quality product administered [Recovered/Resolved]
  - Poor quality product administered [Not Recovered/Not Resolved]
  - Device issue [Not Recovered/Not Resolved]
  - Device difficult to use [Not Recovered/Not Resolved]

NARRATIVE: CASE EVENT DATE: 20220510
